FAERS Safety Report 10080706 (Version 1)
Quarter: 2014Q2

REPORT INFORMATION
  Report Type: Spontaneous
  Country: GB (occurrence: None)
  Receive Date: 20140414
  Receipt Date: 20140414
  Transmission Date: 20141212
  Serious: Yes (Other)
  Sender: FDA-Public Use
  Company Number: AUR-APL-2014-04235

PATIENT
  Age: 27 Year
  Sex: Female
  Weight: 88.2 kg

DRUGS (4)
  1. METFORMIN [Suspect]
     Indication: PRODUCT USED FOR UNKNOWN INDICATION
     Dosage: UNKNOWN
     Dates: start: 20131206
  2. CEFALEXI N (CEFALEXIN) [Concomitant]
  3. GAVISCON ADVANCE (GAVISCON ADVANCE) [Concomitant]
  4. OMEPRAZOLE (OMEPRAZOLE) [Concomitant]

REACTIONS (2)
  - Nausea [None]
  - Drug intolerance [None]
